FAERS Safety Report 9341438 (Version 1)
Quarter: 2013Q2

REPORT INFORMATION
  Report Type: Spontaneous
  Country: US (occurrence: US)
  Receive Date: 20130611
  Receipt Date: 20130611
  Transmission Date: 20140414
  Serious: Yes (Hospitalization)
  Sender: FDA-Public Use
  Company Number: US-JNJFOC-20130602326

PATIENT
  Sex: Female

DRUGS (1)
  1. REMICADE [Suspect]
     Indication: PSORIATIC ARTHROPATHY
     Route: 042

REACTIONS (4)
  - Staphylococcal infection [Recovered/Resolved]
  - Pseudomonas infection [Recovered/Resolved]
  - Psoriasis [Unknown]
  - Ear disorder [Recovered/Resolved]
